FAERS Safety Report 7638932-3 (Version None)
Quarter: 2011Q3

REPORT INFORMATION
  Report Type: 
  Country: None (occurrence: None)
  Receive Date: 20110721
  Receipt Date: 20110705
  Transmission Date: 20111222
  Serious: Yes (Hospitalization)
  Sender: FDA-Public Use
  Company Number: DAV-AE-MTX-10-040

PATIENT
  Age: 58 Year
  Sex: Female
  Weight: 39 kg

DRUGS (6)
  1. OPYRIN [Concomitant]
  2. METHOTREXATE [Suspect]
     Indication: RHEUMATOID ARTHRITIS
     Dosage: 6MG WK ORAL
     Route: 048
     Dates: start: 20041215
  3. MAGNESIUM OXIDE [Concomitant]
  4. SOLETON [Concomitant]
  5. RABEPRAZOLE SODIUM [Concomitant]
  6. PREDNISOLONE [Concomitant]

REACTIONS (3)
  - PAIN [None]
  - PANCYTOPENIA [None]
  - STOMATITIS [None]
